FAERS Safety Report 25409026 (Version 1)
Quarter: 2025Q2

REPORT INFORMATION
  Report Type: Report from Study
  Country: IN (occurrence: IN)
  Receive Date: 20250607
  Receipt Date: 20250607
  Transmission Date: 20250716
  Serious: Yes (Other)
  Sender: ACCORD
  Company Number: IN-Accord-488095

PATIENT

DRUGS (1)
  1. CLOZAPINE [Suspect]
     Active Substance: CLOZAPINE
     Route: 064

REACTIONS (2)
  - Meconium aspiration syndrome [Unknown]
  - Foetal exposure during pregnancy [Unknown]
